FAERS Safety Report 15351584 (Version 1)
Quarter: 2018Q3

REPORT INFORMATION
  Report Type: Spontaneous
  Country: US (occurrence: US)
  Receive Date: 20180829
  Receipt Date: 20180829
  Transmission Date: 20181010
  Serious: Yes (Life-Threatening, Hospitalization, Other)
  Sender: FDA-Public Use
  Company Number: None

PATIENT
  Age: 67 Year
  Sex: Female

DRUGS (1)
  1. VERZENIO [Suspect]
     Active Substance: ABEMACICLIB
     Indication: BREAST CANCER FEMALE
     Route: 048
     Dates: start: 20180721, end: 20180817

REACTIONS (7)
  - Dyspnoea [None]
  - Gait disturbance [None]
  - Platelet count decreased [None]
  - Tachycardia [None]
  - Red blood cell count decreased [None]
  - Blood test abnormal [None]
  - White blood cell count decreased [None]

NARRATIVE: CASE EVENT DATE: 20180723
